FAERS Safety Report 9438483 (Version 2)
Quarter: 2013Q3

REPORT INFORMATION
  Report Type: Spontaneous
  Country: US (occurrence: US)
  Receive Date: 20130802
  Receipt Date: 20130816
  Transmission Date: 20140515
  Serious: No
  Sender: FDA-Public Use
  Company Number: US-BAXTER-2013BAX029523

PATIENT
  Age: 63 Year
  Sex: Female
  Weight: 65.45 kg

DRUGS (8)
  1. GAMMAGARD LIQUID [Suspect]
     Indication: IMMUNODEFICIENCY COMMON VARIABLE
     Route: 042
     Dates: start: 201307
  2. CELEXA [Concomitant]
     Indication: PRODUCT USED FOR UNKNOWN INDICATION
     Route: 048
  3. XALATAN [Concomitant]
     Indication: PRODUCT USED FOR UNKNOWN INDICATION
     Route: 047
  4. SINGULAIR [Concomitant]
     Indication: ASTHMA
     Route: 048
  5. HIZENTRA [Concomitant]
     Indication: IMMUNODEFICIENCY COMMON VARIABLE
     Route: 058
  6. PREDNISONE [Concomitant]
     Indication: PREMEDICATION
     Route: 048
  7. ACETAMINOPHEN [Concomitant]
     Indication: PREMEDICATION
     Route: 048
  8. BENADRYL [Concomitant]
     Indication: PREMEDICATION
     Route: 048

REACTIONS (1)
  - Myalgia [Recovered/Resolved]
